FAERS Safety Report 7676897-9 (Version None)
Quarter: 2011Q3

REPORT INFORMATION
  Report Type: 
  Country: None (occurrence: None)
  Receive Date: 20110805
  Receipt Date: 20110727
  Transmission Date: 20111222
  Serious: Yes (Other)
  Sender: FDA-Public Use
  Company Number: 2008JP005121

PATIENT
  Age: 34 Year
  Sex: Male
  Weight: 69 kg

DRUGS (30)
  1. TAKEPRON (LANSOPRAZOLE) [Concomitant]
  2. FLUVASTATIN [Concomitant]
  3. PL GRAN. (CAFFEINE, PARACETAMOL, PROMETHAZINE METHYLENE DISALICYLATE, [Concomitant]
  4. ASPIRIN [Concomitant]
  5. MICARDIS [Concomitant]
  6. TAHION (GLUTATHIONE) EYE DROP [Concomitant]
  7. COTRIM [Concomitant]
  8. MUCOSTA (REBAMIPIDE) [Concomitant]
  9. SHOUSEIRYUUTOU (HERBAL EXTRACT NOS) [Concomitant]
  10. MEDICON (DEXTROMETHORPHAN  HYDROBROMIDE) [Concomitant]
  11. WARFARIN SODIUM [Concomitant]
  12. KEISHIBUKURYOUGAN (GERBAL EXTRACT NOS) [Concomitant]
  13. TACROLIMUS [Suspect]
     Indication: LUPUS NEPHRITIS
     Dosage: 3MG UNKNOWN/ D, ORAL
     Route: 048
     Dates: start: 20080313
  14. TACROLIMUS [Suspect]
     Indication: LUPUS NEPHRITIS
     Dosage: 3MG UNKNOWN/ D, ORAL
     Route: 048
     Dates: start: 20070423, end: 20080312
  15. PL GRAN. (CAFFEINE, PARACETAMOL, PROMETHAZINE METHYLENE DISALICYLATE, [Concomitant]
  16. BONALON (ALENDRONATE SODIUM) [Concomitant]
  17. HOCHUUEKKITOU (HERBAL EXTRACT NOS) [Concomitant]
  18. PL GRAN. (CAFFEINE, PARACETAMOL, PROMETHAZINE METHYLENE DISALICYLATE, [Concomitant]
  19. PREDNISOLONE [Suspect]
     Indication: LUPUS NEPHRITIS
     Dosage: SEE IMAGE
     Route: 048
     Dates: start: 20070906, end: 20071107
  20. PREDNISOLONE [Suspect]
     Indication: LUPUS NEPHRITIS
     Dosage: SEE IMAGE
     Route: 048
     Dates: start: 20080110, end: 20080912
  21. PREDNISOLONE [Suspect]
     Indication: LUPUS NEPHRITIS
     Dosage: SEE IMAGE
     Route: 048
     Dates: start: 20070703, end: 20070808
  22. PREDNISOLONE [Suspect]
     Indication: LUPUS NEPHRITIS
     Dosage: SEE IMAGE
     Route: 048
     Dates: start: 20070809, end: 20070905
  23. PREDNISOLONE [Suspect]
     Indication: LUPUS NEPHRITIS
     Dosage: SEE IMAGE
     Route: 048
     Dates: end: 20070528
  24. PREDNISOLONE [Suspect]
     Indication: LUPUS NEPHRITIS
     Dosage: SEE IMAGE
     Route: 048
     Dates: start: 20071108, end: 20080109
  25. PREDNISOLONE [Suspect]
     Indication: LUPUS NEPHRITIS
     Dosage: SEE IMAGE
     Route: 048
     Dates: start: 20070529, end: 20070702
  26. PREDNISOLONE [Suspect]
     Indication: LUPUS NEPHRITIS
     Dosage: SEE IMAGE
     Route: 048
     Dates: start: 20080913, end: 20081017
  27. PREDNISOLONE [Suspect]
     Indication: LUPUS NEPHRITIS
     Dosage: SEE IMAGE
     Route: 048
     Dates: start: 20081018
  28. SAIREI-TO (HERBAL EXTRACT NOS) [Concomitant]
  29. OLOPATADINE HYDROCHLORIDE [Concomitant]
  30. MEDICON (DEXTROMETHORPHAN HYDROBROMIDE) [Concomitant]

REACTIONS (7)
  - PHARYNGITIS [None]
  - NERVOUSNESS [None]
  - URTICARIA [None]
  - CATARACT [None]
  - TREMOR [None]
  - DERMAL CYST [None]
  - UPPER RESPIRATORY TRACT INFLAMMATION [None]
